FAERS Safety Report 7393223-3 (Version None)
Quarter: 2011Q2

REPORT INFORMATION
  Report Type: 
  Country: None (occurrence: None)
  Receive Date: 20110405
  Receipt Date: 20110324
  Transmission Date: 20111010
  Serious: Yes (Hospitalization)
  Sender: FDA-Public Use
  Company Number: US-BIOGENIDEC-2010BI021138

PATIENT
  Age: 45 Year
  Sex: Male

DRUGS (2)
  1. TYSABRI [Suspect]
     Indication: MULTIPLE SCLEROSIS
     Route: 042
     Dates: start: 20090831
  2. CLONAZEPAM [Concomitant]
     Indication: MUSCLE SPASMS

REACTIONS (13)
  - NERVE INJURY [None]
  - MULTIPLE SCLEROSIS RELAPSE [None]
  - NECK PAIN [None]
  - ANGER [None]
  - MUSCULAR WEAKNESS [None]
  - INTERVERTEBRAL DISC PROTRUSION [None]
  - VISUAL IMPAIRMENT [None]
  - GAIT DISTURBANCE [None]
  - ANXIETY [None]
  - MOOD SWINGS [None]
  - NERVE COMPRESSION [None]
  - MULTIPLE SCLEROSIS [None]
  - DEPRESSION [None]
